FAERS Safety Report 5285078-8 (Version None)
Quarter: 2007Q2

REPORT INFORMATION
  Report Type: 
  Country: None (occurrence: None)
  Receive Date: 20070403
  Receipt Date: 20070322
  Transmission Date: 20071010
  Serious: Yes (Hospitalization)
  Sender: FDA-Public Use
  Company Number: DE-PFIZER INC-2007024341

PATIENT
  Sex: Male

DRUGS (4)
  1. XALATAN [Suspect]
     Indication: GLAUCOMA
     Route: 061
  2. CORTISONE ACETATE [Concomitant]
  3. TRUSOPT [Concomitant]
     Route: 061
  4. SIMVASTATIN [Concomitant]

REACTIONS (2)
  - ENCEPHALITIS [None]
  - INTRAOCULAR PRESSURE INCREASED [None]
